FAERS Safety Report 9726155 (Version 1)
Quarter: 2013Q4

REPORT INFORMATION
  Report Type: Spontaneous
  Country: FI (occurrence: None)
  Receive Date: 20131127
  Receipt Date: 20131127
  Transmission Date: 20140711
  Serious: Yes (Life-Threatening)
  Sender: FDA-Public Use
  Company Number: FI-20130006

PATIENT
  Age: 82 Year
  Sex: Female

DRUGS (1)
  1. DOTAREM (FLA) (GADOTERIC ACID), 13GDO26A [Suspect]
     Indication: ANGIOGRAM
     Dosage: 23 ML (23 ML, 1 IN 1 D), INTRAVENOUS (NOT OTHERWISE SPECIFIED)
     Route: 042
     Dates: start: 20131031, end: 20131031

REACTIONS (3)
  - Unresponsive to stimuli [None]
  - Urticaria [None]
  - Dermatitis bullous [None]
